FAERS Safety Report 19094148 (Version 1)
Quarter: 2021Q2

REPORT INFORMATION
  Report Type: Spontaneous
  Country: CA (occurrence: CA)
  Receive Date: 20210405
  Receipt Date: 20210405
  Transmission Date: 20210717
  Serious: Yes (Hospitalization, Other)
  Sender: FDA-Public Use
  Company Number: CA-GLAXOSMITHKLINE-CA2019GSK132064

PATIENT
  Sex: Female

DRUGS (9)
  1. FYCOMPA [Suspect]
     Active Substance: PERAMPANEL
     Indication: EPILEPSY
     Dosage: 2 MG, 1D
     Route: 048
     Dates: start: 2019, end: 2019
  2. FYCOMPA [Suspect]
     Active Substance: PERAMPANEL
     Dosage: 12 MG, 1D
     Route: 048
  3. FYCOMPA [Suspect]
     Active Substance: PERAMPANEL
     Dosage: 8 MG, 1D
     Route: 048
  4. FYCOMPA [Suspect]
     Active Substance: PERAMPANEL
     Dosage: 10 MG, 1D
     Route: 048
  5. LAMOTRIGINE. [Suspect]
     Active Substance: LAMOTRIGINE
     Indication: PRODUCT USED FOR UNKNOWN INDICATION
     Dosage: UNK
     Dates: start: 201906
  6. FYCOMPA [Suspect]
     Active Substance: PERAMPANEL
     Indication: FOCAL DYSCOGNITIVE SEIZURES
     Dosage: 4 MG, 1D
     Route: 048
     Dates: start: 2019, end: 2019
  7. RAMIPRIL. [Concomitant]
     Active Substance: RAMIPRIL
     Indication: PRODUCT USED FOR UNKNOWN INDICATION
     Dosage: UNK
  8. FYCOMPA [Suspect]
     Active Substance: PERAMPANEL
     Dosage: 6 MG, 1D
     Route: 048
     Dates: start: 2019
  9. CLOBAZAM. [Concomitant]
     Active Substance: CLOBAZAM
     Indication: PRODUCT USED FOR UNKNOWN INDICATION
     Dosage: UNK
     Route: 048

REACTIONS (12)
  - Epilepsy [Recovered/Resolved]
  - Chronic kidney disease [Recovered/Resolved]
  - Confusional state [Recovered/Resolved]
  - Fatigue [Recovered/Resolved]
  - Influenza [Recovered/Resolved]
  - Transient ischaemic attack [Recovered/Resolved]
  - Urinary incontinence [Recovered/Resolved]
  - Blood pressure fluctuation [Recovered/Resolved]
  - Nausea [Recovered/Resolved]
  - Platelet count decreased [Recovered/Resolved]
  - Hypertension [Recovered/Resolved]
  - Intentional product use issue [Unknown]
